FAERS Safety Report 8401488-1 (Version None)
Quarter: 2012Q2

REPORT INFORMATION
  Report Type: 
  Country: None (occurrence: None)
  Receive Date: 20120601
  Receipt Date: 20120530
  Transmission Date: 20120825
  Serious: Yes (Other)
  Sender: FDA-Public Use
  Company Number: PHEH2011US010095

PATIENT
  Sex: Female
  Weight: 104.31 kg

DRUGS (6)
  1. BACKLIFIN [Concomitant]
  2. GILENYA [Suspect]
     Dosage: 0.5 MG, QD
     Route: 048
     Dates: start: 20120301
  3. METFORMIN HCL [Concomitant]
  4. INSULIN [Concomitant]
  5. GILENYA [Suspect]
     Indication: MULTIPLE SCLEROSIS
     Dosage: 0.5 MG, QD
     Route: 048
     Dates: start: 20111116, end: 20120301
  6. PAXIL [Concomitant]

REACTIONS (4)
  - ABDOMINAL DISCOMFORT [None]
  - DIZZINESS [None]
  - FALL [None]
  - TREMOR [None]
